FAERS Safety Report 7300972-1 (Version None)
Quarter: 2011Q1

REPORT INFORMATION
  Report Type: 
  Country: None (occurrence: None)
  Receive Date: 20110110
  Receipt Date: 20101015
  Transmission Date: 20110831
  Serious: No
  Sender: FDA-Public Use
  Company Number: 2010IP000132

PATIENT
  Age: 44 Year
  Sex: Female
  Weight: 103.4201 kg

DRUGS (5)
  1. MULTI-VITAMIN [Concomitant]
  2. TYLENOL EXTRA STRENGTH [Concomitant]
  3. BEPREVE [Suspect]
     Indication: CONJUNCTIVITIS ALLERGIC
     Dosage: 1 GTT; BID; OPH
     Route: 047
     Dates: start: 20100401, end: 20100401
  4. POTASSIUM [Concomitant]
  5. CALCIUM [Concomitant]

REACTIONS (1)
  - DRUG INEFFECTIVE [None]
